FAERS Safety Report 4731458-6 (Version None)
Quarter: 2005Q3

REPORT INFORMATION
  Report Type: 
  Country: None (occurrence: None)
  Receive Date: 20050801
  Receipt Date: 20050801
  Transmission Date: 20060218
  Serious: No
  Sender: FDA-Public Use
  Company Number: None

PATIENT
  Age: 74 Year
  Sex: Female

DRUGS (2)
  1. VISIPAQUE 320 [Suspect]
     Indication: ANGIOGRAM
     Dosage: 320  IV    INTRAVENOU
     Route: 042
     Dates: start: 20050725, end: 20050725
  2. VISIPAQUE 320 [Suspect]

REACTIONS (2)
  - PROCEDURAL COMPLICATION [None]
  - URTICARIA [None]
